FAERS Safety Report 6153993-9 (Version None)
Quarter: 2009Q2

REPORT INFORMATION
  Report Type: 
  Country: None (occurrence: None)
  Receive Date: 20090414
  Receipt Date: 20090403
  Transmission Date: 20091009
  Serious: Yes (Other)
  Sender: FDA-Public Use
  Company Number: PHHY2009AU13135

PATIENT
  Sex: Male

DRUGS (1)
  1. STALEVO 100 [Suspect]
     Indication: PARKINSON'S DISEASE
     Dosage: 1 OF (100/25/200 MG) TABLET AT NIGHT AND 3 OF THE (150/37.5/200 MG) DURING DAY

REACTIONS (6)
  - BLADDER CATHETERISATION [None]
  - CATHETER RELATED COMPLICATION [None]
  - CHROMATURIA [None]
  - MOVEMENT DISORDER [None]
  - PARKINSON'S DISEASE [None]
  - TREMOR [None]
